FAERS Safety Report 5072941-6 (Version None)
Quarter: 2006Q3

REPORT INFORMATION
  Report Type: 
  Country: None (occurrence: None)
  Receive Date: 20060802
  Receipt Date: 20060718
  Transmission Date: 20061208
  Serious: Yes (Other)
  Sender: FDA-Public Use
  Company Number: GB200607002948

PATIENT
  Sex: Female

DRUGS (4)
  1. CYMBALTA [Suspect]
     Indication: DEPRESSION
     Dates: start: 20060501
  2. ZYPREXA [Suspect]
     Indication: BIPOLAR DISORDER
     Dosage: 2.5 MG
  3. ASPIRIN [Concomitant]
  4. CARBAMAZEPINE [Concomitant]

REACTIONS (1)
  - SMALL INTESTINAL HAEMORRHAGE [None]
